FAERS Safety Report 7512552-3 (Version None)
Quarter: 2011Q2

REPORT INFORMATION
  Report Type: 
  Country: None (occurrence: None)
  Receive Date: 20110525
  Receipt Date: 20110525
  Transmission Date: 20111010
  Serious: Yes (Death)
  Sender: FDA-Public Use
  Company Number: None

PATIENT
  Age: 73 Year
  Sex: Female
  Weight: 41.8 kg

DRUGS (1)
  1. TREANDA [Suspect]
     Indication: SMALL CELL LUNG CANCER STAGE UNSPECIFIED
     Dosage: 120 MG/M2 IV Q 21 DAYS
     Route: 042
     Dates: start: 20110426, end: 20110427

REACTIONS (5)
  - CARDIAC FAILURE CONGESTIVE [None]
  - WHEEZING [None]
  - DYSPNOEA [None]
  - OXYGEN SATURATION DECREASED [None]
  - RESPIRATORY DISORDER [None]
